FAERS Safety Report 5948739-0 (Version None)
Quarter: 2008Q4

REPORT INFORMATION
  Report Type: 
  Country: None (occurrence: None)
  Receive Date: 20081111
  Receipt Date: 20081106
  Transmission Date: 20090506
  Serious: Yes (Other)
  Sender: FDA-Public Use
  Company Number: GB-WYE-G02281108

PATIENT
  Sex: Female
  Weight: 69.92 kg

DRUGS (6)
  1. EFFEXOR XR [Suspect]
     Indication: DEPRESSION
     Dosage: 225 MG (FREQUENCY UNKNOWN)
     Route: 048
     Dates: start: 20060101, end: 20080801
  2. BETAHISTINE HYDROCHLORIDE [Concomitant]
  3. ZOMIG [Concomitant]
     Dosage: UNKNOWN
  4. GAVISCON [Concomitant]
  5. ESOMEPRAZOLE MAGNESIUM [Concomitant]
     Dosage: 80MG FREQUENCY UNKNOWN
     Route: 048
  6. ACETAMINOPHEN W/ CODEINE [Concomitant]
     Route: 048

REACTIONS (9)
  - ARTHRALGIA [None]
  - DRY MOUTH [None]
  - FACE OEDEMA [None]
  - JOINT STIFFNESS [None]
  - JOINT SWELLING [None]
  - MUSCULOSKELETAL STIFFNESS [None]
  - MYALGIA [None]
  - OEDEMA [None]
  - OEDEMA PERIPHERAL [None]
